FAERS Safety Report 24928406 (Version 1)
Quarter: 2025Q1

REPORT INFORMATION
  Report Type: Spontaneous
  Country: US (occurrence: US)
  Receive Date: 20250205
  Receipt Date: 20250205
  Transmission Date: 20250409
  Serious: Yes (Other)
  Sender: INTRA-CELLULAR THERAPIES
  Company Number: US-INTRA-CELLULAR THERAPIES, INC.-2025ICT00085

PATIENT
  Sex: Female

DRUGS (2)
  1. CAPLYTA [Suspect]
     Active Substance: LUMATEPERONE
     Indication: Bipolar I disorder
  2. CAPLYTA [Suspect]
     Active Substance: LUMATEPERONE

REACTIONS (3)
  - Bipolar I disorder [Unknown]
  - Sleep disorder [Unknown]
  - Off label use [Not Recovered/Not Resolved]
